FAERS Safety Report 25689468 (Version 1)
Quarter: 2025Q3

REPORT INFORMATION
  Report Type: Spontaneous
  Country: EU (occurrence: EU)
  Receive Date: 20250818
  Receipt Date: 20250818
  Transmission Date: 20251020
  Serious: Yes (Hospitalization)
  Sender: AUROBINDO
  Company Number: EU-AFSSAPS-TO2025000934

PATIENT
  Sex: Male

DRUGS (4)
  1. PANTOPRAZOLE [Suspect]
     Active Substance: PANTOPRAZOLE
     Indication: Impaired gastric emptying
     Dosage: 40 MILLIGRAM, ONCE A DAY
     Route: 048
     Dates: start: 20250606, end: 20250609
  2. AMOXICILLIN [Suspect]
     Active Substance: AMOXICILLIN
     Indication: Infection
     Dosage: 1 GRAM, ONCE A DAY
     Route: 048
     Dates: start: 20250517, end: 20250603
  3. PENICILLIN V [Suspect]
     Active Substance: PENICILLIN V
     Indication: Infection
     Dosage: 2000000 INTERNATIONAL UNIT, ONCE A DAY
     Route: 048
     Dates: start: 20250516, end: 20250603
  4. CASPOFUNGIN ACETATE [Suspect]
     Active Substance: CASPOFUNGIN ACETATE
     Indication: Fungaemia
     Dosage: 70 MILLIGRAM, ONCE A DAY
     Route: 042
     Dates: start: 20250606, end: 20250616

REACTIONS (1)
  - Eosinophilia [Not Recovered/Not Resolved]

NARRATIVE: CASE EVENT DATE: 20250603
